FAERS Safety Report 7076630-8 (Version None)
Quarter: 2010Q4

REPORT INFORMATION
  Report Type: 
  Country: None (occurrence: None)
  Receive Date: 20101101
  Receipt Date: 20101019
  Transmission Date: 20110411
  Serious: Yes (Hospitalization, Other)
  Sender: FDA-Public Use
  Company Number: GB-NOVOPROD-292877

PATIENT
  Sex: Male
  Weight: 102.9 kg

DRUGS (8)
  1. LIRAGLUTIDE FLEXPEN [Suspect]
     Indication: TYPE 2 DIABETES MELLITUS
     Dosage: 1.8 MG, QD
     Route: 058
     Dates: start: 20090418, end: 20091015
  2. LIRAGLUTIDE FLEXPEN [Suspect]
     Dosage: 1.8 MG, QD
     Route: 058
     Dates: start: 20091029, end: 20091123
  3. METFORMIN [Concomitant]
     Dosage: 2 G, QD
     Route: 048
     Dates: start: 20070914
  4. RAMIPRIL [Concomitant]
     Dosage: 10 MG, QD
     Route: 048
     Dates: start: 20070831
  5. SIMVASTATIN [Concomitant]
     Dosage: 40 MG, QD
     Route: 048
     Dates: start: 20060101
  6. AMLODIPINE [Concomitant]
     Dosage: 5 MG, UNK
     Route: 048
     Dates: start: 20071217
  7. ASPIRIN [Concomitant]
     Dosage: 75 MG, QD
     Route: 048
     Dates: start: 20090101
  8. ALLOPURINOL [Concomitant]
     Dosage: 300 MG, QD
     Dates: start: 20060101

REACTIONS (2)
  - HELICOBACTER GASTRITIS [None]
  - PANCREATITIS CHRONIC [None]
